FAERS Safety Report 18096620 (Version 1)
Quarter: 2020Q3

REPORT INFORMATION
  Report Type: Spontaneous
  Country: US (occurrence: US)
  Receive Date: 20200731
  Receipt Date: 20200731
  Transmission Date: 20201103
  Serious: Yes (Other)
  Sender: FDA-Public Use
  Company Number: US-ASTRAZENECA-2020SE94874

PATIENT

DRUGS (1)
  1. TAGRISSO [Suspect]
     Active Substance: OSIMERTINIB
     Dosage: 80.0MG UNKNOWN
     Route: 048
     Dates: start: 201909

REACTIONS (3)
  - Ejection fraction decreased [Unknown]
  - Cardiomyopathy [Unknown]
  - Dyspnoea [Unknown]

NARRATIVE: CASE EVENT DATE: 202005
